FAERS Safety Report 8481198-5 (Version None)
Quarter: 2012Q2

REPORT INFORMATION
  Report Type: 
  Country: None (occurrence: None)
  Receive Date: 20120618
  Receipt Date: 20120613
  Transmission Date: 20120825
  Serious: Yes (Hospitalization, Disabling, Other)
  Sender: FDA-Public Use
  Company Number: 2010SP006325

PATIENT
  Age: 29 Year
  Sex: Female
  Weight: 53.978 kg

DRUGS (5)
  1. VALTREX [Concomitant]
  2. FIORICET [Concomitant]
  3. NUVARING [Suspect]
     Indication: CONTRACEPTION
     Dosage: VAG
     Route: 067
     Dates: start: 20070306, end: 20070704
  4. TRAMADOL A/APAP [Concomitant]
  5. VENTOLIN [Concomitant]

REACTIONS (24)
  - TRANSVERSE SINUS THROMBOSIS [None]
  - PNEUMONIA [None]
  - GRAND MAL CONVULSION [None]
  - APHASIA [None]
  - MIGRAINE [None]
  - CHOKING [None]
  - ASTHMA [None]
  - VISUAL ACUITY REDUCED [None]
  - CEREBRAL HAEMORRHAGE [None]
  - VISION BLURRED [None]
  - DYSKINESIA [None]
  - MUSCLE TWITCHING [None]
  - PAIN [None]
  - GRANULOMA [None]
  - BALANCE DISORDER [None]
  - CEREBRAL INFARCTION [None]
  - CEREBRAL VENOUS THROMBOSIS [None]
  - VOCAL CORD PARALYSIS [None]
  - VOCAL CORD DISORDER [None]
  - HEARING IMPAIRED [None]
  - SPINAL OSTEOARTHRITIS [None]
  - PNEUMONIA ASPIRATION [None]
  - HYPERCOAGULATION [None]
  - LARYNGEAL STENOSIS [None]
